FAERS Safety Report 5331180-1 (Version None)
Quarter: 2007Q2

REPORT INFORMATION
  Report Type: 
  Country: None (occurrence: None)
  Receive Date: 20070522
  Receipt Date: 20070514
  Transmission Date: 20071010
  Serious: Yes (Death, Other)
  Sender: FDA-Public Use
  Company Number: HQWYE205015MAY07

PATIENT
  Sex: Male
  Weight: 93.07 kg

DRUGS (2)
  1. EFFEXOR XR [Suspect]
     Indication: DEPRESSION
     Route: 048
     Dates: start: 20070307, end: 20070417
  2. SEROQUEL [Concomitant]
     Indication: DEPRESSION
     Route: 048

REACTIONS (2)
  - COMPLETED SUICIDE [None]
  - HALLUCINATION, AUDITORY [None]
